FAERS Safety Report 23244523 (Version 1)
Quarter: 2023Q4

REPORT INFORMATION
  Report Type: Report from Study
  Country: US (occurrence: None)
  Receive Date: 20231130
  Receipt Date: 20231130
  Transmission Date: 20240110
  Serious: Yes (Other)
  Sender: FDA-Public Use
  Company Number: 2023A269125

PATIENT
  Sex: Female

DRUGS (1)
  1. CALQUENCE [Suspect]
     Active Substance: ACALABRUTINIB
     Dosage: 100MG TABLET -TAKE 1 TABLET BY MOUTH EVERY 12 HOURS TAKE WITH OR WITHOUT FOOD
     Route: 048

REACTIONS (1)
  - Deafness [Unknown]
